FAERS Safety Report 6110241-3 (Version None)
Quarter: 2009Q1

REPORT INFORMATION
  Report Type: 
  Country: None (occurrence: None)
  Receive Date: 20090309
  Receipt Date: 20090309
  Transmission Date: 20090719
  Serious: Yes (Life-Threatening, Hospitalization)
  Sender: FDA-Public Use
  Company Number: None

PATIENT
  Age: 17 Year
  Sex: Female
  Weight: 61.2356 kg

DRUGS (1)
  1. NUVARING [Suspect]
     Indication: POLYCYSTIC OVARIES
     Dosage: ONE RING FOR THREE WEEKS VAG
     Route: 067
     Dates: start: 20061001, end: 20090110

REACTIONS (1)
  - DEEP VEIN THROMBOSIS [None]
